FAERS Safety Report 19877851 (Version 1)
Quarter: 2021Q3

REPORT INFORMATION
  Report Type: Spontaneous
  Country: US (occurrence: US)
  Receive Date: 20210924
  Receipt Date: 20210924
  Transmission Date: 20211014
  Serious: Yes (Other)
  Sender: FDA-Public Use
  Company Number: US-PROCTER_AND_GAMBLE-PH21008344

PATIENT

DRUGS (1)
  1. VICKS VAPOBATH BATH CRYSTALS [CAMPHOR (SYNTHETIC)\EUCALYPTUS OIL\MENTHOL] [Suspect]
     Active Substance: CAMPHOR (SYNTHETIC)\EUCALYPTUS OIL\MENTHOL
     Dosage: UNK
     Route: 061

REACTIONS (1)
  - Third degree chemical burn of skin [Unknown]
